FAERS Safety Report 12281773 (Version 3)
Quarter: 2016Q4

REPORT INFORMATION
  Report Type: Spontaneous
  Country: US (occurrence: US)
  Receive Date: 20160419
  Receipt Date: 20161111
  Transmission Date: 20170207
  Serious: Yes (Other)
  Sender: FDA-Public Use
  Company Number: US-TEVA-644385USA

PATIENT
  Age: 49 Year
  Sex: Female

DRUGS (11)
  1. IMITREX [Concomitant]
     Active Substance: SUMATRIPTAN SUCCINATE
  2. MVI [Concomitant]
     Active Substance: VITAMINS
  3. BIOTIN [Concomitant]
     Active Substance: BIOTIN
  4. VITAMIN B [Concomitant]
     Active Substance: VITAMIN B
  5. VITAMIN D [Concomitant]
     Active Substance: CHOLECALCIFEROL
  6. LEVOTHYROXINE. [Concomitant]
     Active Substance: LEVOTHYROXINE
  7. OXYMORPHONE [Concomitant]
     Active Substance: OXYMORPHONE
  8. BUPROPION. [Concomitant]
     Active Substance: BUPROPION
  9. ZECUITY [Suspect]
     Active Substance: SUMATRIPTAN SUCCINATE
     Indication: HEADACHE
     Route: 062
     Dates: start: 20160315, end: 20160315
  10. TOPIRAMATE. [Concomitant]
     Active Substance: TOPIRAMATE
  11. IMITREX [Concomitant]
     Active Substance: SUMATRIPTAN SUCCINATE

REACTIONS (16)
  - Application site pain [Recovered/Resolved]
  - Application site pruritus [Recovered/Resolved]
  - Application site warmth [Recovered/Resolved]
  - Product leakage [Recovered/Resolved]
  - Application site discomfort [Recovered/Resolved]
  - Device battery issue [Unknown]
  - Application site papules [Recovered/Resolved]
  - Application site urticaria [Recovered/Resolved]
  - Application site erythema [Recovered/Resolved]
  - Application site discolouration [Recovered/Resolved]
  - Drug effect incomplete [Unknown]
  - Product adhesion issue [Unknown]
  - Application site burn [Recovered/Resolved]
  - Application site scar [Recovered/Resolved]
  - Application site paraesthesia [Recovered/Resolved]
  - Application site irritation [Recovered/Resolved]

NARRATIVE: CASE EVENT DATE: 201603
